FAERS Safety Report 7310229-0 (Version None)
Quarter: 2011Q1

REPORT INFORMATION
  Report Type: 
  Country: None (occurrence: None)
  Receive Date: 20110224
  Receipt Date: 20110216
  Transmission Date: 20110831
  Serious: Yes (Hospitalization)
  Sender: FDA-Public Use
  Company Number: JP-ABBOTT-11P-087-0700795-00

PATIENT
  Sex: Male
  Weight: 85 kg

DRUGS (15)
  1. PREDNISONE VALERATE ACETATE [Concomitant]
     Indication: DERMATITIS EXFOLIATIVE
     Dosage: 5 TO 10 G
     Route: 061
     Dates: start: 20051124
  2. ENALAPRIL MALEATE [Concomitant]
     Indication: HYPERTENSION
     Route: 048
     Dates: start: 20100505
  3. HUMIRA [Suspect]
     Dates: start: 20101208, end: 20101222
  4. HUMIRA [Suspect]
     Indication: ERYTHRODERMIC PSORIASIS
     Route: 058
     Dates: start: 20101124, end: 20101124
  5. CARVEDILOL [Concomitant]
     Indication: HYPERTENSION
     Route: 048
     Dates: start: 20091114
  6. LANSOPRAZOLE [Concomitant]
     Indication: REFLUX OESOPHAGITIS
     Dates: start: 20091114
  7. BETAMETHASONE SODIUM PHOSPHATE [Concomitant]
     Indication: OTITIS EXTERNA
     Dosage: QS
     Dates: start: 20110106
  8. CICLOSPORIN [Concomitant]
     Indication: PRODUCT USED FOR UNKNOWN INDICATION
  9. OLOPATADINE HYDROCHLORIDE [Concomitant]
     Indication: DERMATITIS EXFOLIATIVE
     Route: 048
     Dates: start: 20101222
  10. TACALCITOL HYDRATE [Concomitant]
     Indication: PSORIASIS
     Dosage: 5 TO 10 G
     Route: 061
     Dates: start: 20100527
  11. HEPARIN [Concomitant]
     Indication: DERMATITIS EXFOLIATIVE
     Dosage: QS
     Route: 061
  12. WHITE PETROLEUM [Concomitant]
     Indication: DERMATITIS EXFOLIATIVE
     Dosage: QS
     Route: 061
  13. OFLOXACIN [Concomitant]
     Indication: OTITIS EXTERNA
     Dosage: QS
  14. HUMIRA [Suspect]
     Dates: start: 20110105, end: 20110110
  15. METENOLONE [Concomitant]
     Indication: MYELODYSPLASTIC SYNDROME
     Route: 048
     Dates: start: 20100422

REACTIONS (8)
  - MOBILITY DECREASED [None]
  - PAIN OF SKIN [None]
  - C-REACTIVE PROTEIN INCREASED [None]
  - ERYTHRODERMIC PSORIASIS [None]
  - HYPERURICAEMIA [None]
  - PYREXIA [None]
  - ARTHRALGIA [None]
  - WHITE BLOOD CELL COUNT INCREASED [None]
